FAERS Safety Report 22354984 (Version 1)
Quarter: 2023Q2

REPORT INFORMATION
  Report Type: Spontaneous
  Country: CN (occurrence: CN)
  Receive Date: 20230523
  Receipt Date: 20230523
  Transmission Date: 20230722
  Serious: Yes (Death, Other)
  Sender: FDA-Public Use
  Company Number: CN-ALKEM LABORATORIES LIMITED-CN-ALKEM-2023-05448

PATIENT

DRUGS (2)
  1. MORPHINE SULFATE [Interacting]
     Active Substance: MORPHINE SULFATE
     Indication: Product used for unknown indication
     Dosage: UNK
     Route: 065
  2. CIMETIDINE [Interacting]
     Active Substance: CIMETIDINE
     Indication: Product used for unknown indication
     Dosage: UNK
     Route: 065

REACTIONS (4)
  - Seizure [Fatal]
  - Abnormal behaviour [Fatal]
  - Drug interaction [Fatal]
  - Respiratory arrest [Fatal]
